FAERS Safety Report 9684740 (Version 1)
Quarter: 2013Q4

REPORT INFORMATION
  Report Type: Spontaneous
  Country: US (occurrence: US)
  Receive Date: 20131112
  Receipt Date: 20131112
  Transmission Date: 20140711
  Serious: Yes (Other)
  Sender: FDA-Public Use
  Company Number: US-TEVA-443990USA

PATIENT
  Age: 27 Year
  Sex: Female
  Weight: 67.65 kg

DRUGS (2)
  1. PARAGARD 380A [Suspect]
     Indication: CONTRACEPTION
     Dates: start: 20120608, end: 20120913
  2. LOESTRIN FE [Suspect]
     Dates: start: 20130722

REACTIONS (2)
  - Venous thrombosis limb [Recovered/Resolved]
  - Device expulsion [Recovered/Resolved]
